FAERS Safety Report 7502506-5 (Version None)
Quarter: 2011Q2

REPORT INFORMATION
  Report Type: 
  Country: None (occurrence: None)
  Receive Date: 20110525
  Receipt Date: 20110513
  Transmission Date: 20111010
  Serious: Yes (Hospitalization)
  Sender: FDA-Public Use
  Company Number: ZA-JNJFOC-20110506613

PATIENT
  Age: 77 Year
  Sex: Female
  Weight: 69.7 kg

DRUGS (7)
  1. GOLIMUMAB [Suspect]
     Route: 058
     Dates: start: 20101018
  2. NEXIUM [Concomitant]
     Indication: PEPTIC ULCER
     Route: 048
     Dates: start: 20090819
  3. METHOTREXATE [Concomitant]
     Indication: RHEUMATOID ARTHRITIS
     Route: 048
     Dates: start: 20090902
  4. GOLIMUMAB [Suspect]
     Indication: RHEUMATOID ARTHRITIS
     Route: 058
     Dates: start: 20110418
  5. VOLTAREN [Concomitant]
     Indication: RHEUMATOID ARTHRITIS
     Route: 048
     Dates: start: 20091130
  6. FOLIC ACID [Concomitant]
     Indication: RHEUMATOID ARTHRITIS
     Route: 048
     Dates: start: 20090801
  7. PLASMOQUINE [Concomitant]
     Indication: RHEUMATOID ARTHRITIS
     Route: 048
     Dates: start: 20091130

REACTIONS (1)
  - ADENOCARCINOMA [None]
